FAERS Safety Report 4427216-2 (Version None)
Quarter: 2004Q3

REPORT INFORMATION
  Report Type: 
  Country: None (occurrence: None)
  Receive Date: 20040817
  Receipt Date: 20040805
  Transmission Date: 20050211
  Serious: Yes (Other)
  Sender: FDA-Public Use
  Company Number: GB-JNJFOC-20040801638

PATIENT
  Age: 21 Year
  Sex: Male
  Weight: 62 kg

DRUGS (4)
  1. REMICADE [Suspect]
     Indication: ANKYLOSING SPONDYLITIS
     Route: 042
  2. METHOTREXATE [Concomitant]
     Indication: ANKYLOSING SPONDYLITIS
  3. FENTANYL [Concomitant]
     Indication: PAIN
     Dosage: VARIABLE
     Route: 049
  4. TRAMADOL HCL [Concomitant]
     Indication: PAIN
     Route: 049

REACTIONS (3)
  - MULTIPLE SCLEROSIS [None]
  - OPTIC NEURITIS [None]
  - PARAESTHESIA [None]
